FAERS Safety Report 7406746-5 (Version None)
Quarter: 2011Q2

REPORT INFORMATION
  Report Type: 
  Country: None (occurrence: None)
  Receive Date: 20110411
  Receipt Date: 20110111
  Transmission Date: 20111010
  Serious: No
  Sender: FDA-Public Use
  Company Number: US-BAYER-2011-030160

PATIENT
  Sex: Male
  Weight: 68 kg

DRUGS (8)
  1. METOPROLOL TARTRATE [Concomitant]
  2. OXYCODONE [Concomitant]
  3. NORCO [Concomitant]
  4. ASPIRIN [Suspect]
     Indication: MYOCARDIAL INFARCTION
     Dosage: 1 DF, QD
     Route: 048
     Dates: start: 20100801
  5. LISINOPRIL [Concomitant]
  6. PLAVIX [Concomitant]
  7. FLOMAX [Concomitant]
  8. PRAVASTATIN [Concomitant]

REACTIONS (1)
  - URTICARIA [None]
